FAERS Safety Report 10058657 (Version 2)
Quarter: 2014Q2

REPORT INFORMATION
  Report Type: Spontaneous
  Country: US (occurrence: US)
  Receive Date: 20140404
  Receipt Date: 20140404
  Transmission Date: 20141212
  Serious: Yes (Hospitalization, Other)
  Sender: FDA-Public Use
  Company Number: US-009507513-1105USA01975

PATIENT
  Sex: Female
  Weight: 70.31 kg

DRUGS (8)
  1. FOSAMAX [Suspect]
     Indication: OSTEOPOROSIS
     Dosage: 5 MG, QD
     Route: 048
     Dates: start: 19980623, end: 20080312
  2. FOSAMAX [Suspect]
     Dosage: 70 MG, QW
     Route: 048
     Dates: start: 2003, end: 20110309
  3. FOSAMAX [Suspect]
     Dosage: 70 MG, QW
     Route: 048
     Dates: start: 200803, end: 200909
  4. FOSAMAX [Suspect]
     Dosage: 70  MG QW,
     Route: 048
     Dates: start: 200912
  5. ALENDRONATE SODIUM [Suspect]
     Indication: OSTEOPOROSIS
     Dosage: 70 MG, WEEKLY
     Dates: start: 20080312, end: 20101229
  6. ONE-A-DAY 50 PLUS [Concomitant]
     Dosage: UNK UNK, QD
     Dates: start: 1998
  7. CALCIUM (UNSPECIFIED) [Concomitant]
     Dosage: 500 MG, QD
     Dates: start: 1998
  8. PREMPRO [Concomitant]
     Dosage: 5 MG, UNK

REACTIONS (17)
  - Intramedullary rod insertion [Unknown]
  - Femur fracture [Recovering/Resolving]
  - Tooth fracture [Unknown]
  - Osteopenia [Unknown]
  - Reproductive tract disorder [Unknown]
  - Anxiety [Recovering/Resolving]
  - Cholecystitis [Unknown]
  - Osteoporosis [Unknown]
  - Tonsillar disorder [Unknown]
  - Radiculopathy [Unknown]
  - Stress fracture [Unknown]
  - Aortic calcification [Unknown]
  - Skin ulcer [Recovering/Resolving]
  - Adverse event [Unknown]
  - Muscle spasms [Unknown]
  - Bone pain [Unknown]
  - Erythema [Recovering/Resolving]
